FAERS Safety Report 6300805-6 (Version None)
Quarter: 2009Q3

REPORT INFORMATION
  Report Type: 
  Country: None (occurrence: None)
  Receive Date: 20090807
  Receipt Date: 20090731
  Transmission Date: 20100115
  Serious: Yes (Other)
  Sender: FDA-Public Use
  Company Number: NO-BRISTOL-MYERS SQUIBB COMPANY-14521215

PATIENT
  Age: 33 Year
  Sex: Male

DRUGS (12)
  1. CISPLATIN [Suspect]
     Indication: EWING'S SARCOMA
  2. BLEOMYCIN SULFATE [Suspect]
     Indication: EWING'S SARCOMA
  3. ETOPOSIDE [Suspect]
     Indication: EWING'S SARCOMA
     Dosage: INITIAL DOSE ON 15DEC2008. STARTED AND STOPPED ON 17DEC2008 (1430-1530 HOURS)
     Dates: start: 20081216, end: 20081216
  4. HOLOXAN [Suspect]
     Indication: EWING'S SARCOMA
     Dosage: 26-28NOV2008;6200MG 15-17DEC2008;6000MG(THE LAST DAY FROM 1115HOURS-1315HOURS)
     Dates: start: 20081126
  5. MESNA [Suspect]
     Indication: EWING'S SARCOMA
     Dosage: INITIAL DOSE ON 15DEC2008. STARTED AND STOPPED ON 17DEC2008 (1115-1145 HOURS)
     Dates: start: 20081216, end: 20081216
  6. DOXORUBICIN HCL [Suspect]
     Indication: EWING'S SARCOMA
     Dates: start: 20081215, end: 20081217
  7. VINCRISTINE SULFATE [Suspect]
     Indication: EWING'S SARCOMA
     Dates: start: 20081215, end: 20081215
  8. ZOPICLONE [Concomitant]
     Dosage: TABLET;10MG*1 ^VESP^.
     Dates: start: 20081218, end: 20081218
  9. ZOFRAN [Concomitant]
     Dosage: TABLET;8MG*2
     Dates: start: 20081218, end: 20081218
  10. DUPHALAC [Concomitant]
     Dosage: ML*15ML:2.
     Dates: start: 20081218, end: 20081218
  11. PARACETAMOL TABS [Concomitant]
     Dosage: TABLET;1000MG*4.
     Dates: start: 20081218, end: 20081218
  12. FRAGMIN [Concomitant]
     Dosage: 1DF=2500IE;INJ;2500IE*1.
     Route: 058
     Dates: start: 20081218, end: 20081218

REACTIONS (3)
  - CONFUSIONAL STATE [None]
  - RESTLESSNESS [None]
  - SPEECH DISORDER [None]
